FAERS Safety Report 7597067-9 (Version None)
Quarter: 2011Q3

REPORT INFORMATION
  Report Type: 
  Country: None (occurrence: None)
  Receive Date: 20110708
  Receipt Date: 20110706
  Transmission Date: 20111222
  Serious: Yes (Hospitalization)
  Sender: FDA-Public Use
  Company Number: US-PFIZER INC-2009307648

PATIENT
  Sex: Female
  Weight: 73.923 kg

DRUGS (7)
  1. VERAPAMIL HCL [Suspect]
     Indication: HYPERTENSION
  2. PROMETRIUM [Concomitant]
     Indication: MENOPAUSE
  3. VASOTEC [Concomitant]
     Indication: HYPERTENSION
     Dosage: UNK
  4. VERAPAMIL HCL [Suspect]
     Indication: ARRHYTHMIA
     Dosage: 240 MG, 1X/DAY
  5. VERAPAMIL HCL [Suspect]
     Indication: CARDIAC DISORDER
  6. LEVOTHYROXINE [Concomitant]
     Indication: THYROID DISORDER
  7. ESTRACE [Concomitant]
     Indication: MENOPAUSE
     Dosage: UNK

REACTIONS (2)
  - HEART RATE IRREGULAR [None]
  - DIZZINESS [None]
